FAERS Safety Report 6641932-3 (Version None)
Quarter: 2010Q1

REPORT INFORMATION
  Report Type: 
  Country: None (occurrence: None)
  Receive Date: 20100319
  Receipt Date: 20100310
  Transmission Date: 20100710
  Serious: Yes (Other)
  Sender: FDA-Public Use
  Company Number: AU-NAPPMUNDI-GBR-2010-0006258

PATIENT
  Age: 75 Year
  Sex: Male

DRUGS (5)
  1. MORPHINE SULFATE [Suspect]
     Indication: ANALGESIC THERAPY
     Dosage: 240 MG, DAILY
     Route: 042
  2. METHADONE [Concomitant]
  3. PIROXICAM [Concomitant]
  4. PARACETAMOL [Concomitant]
  5. DEXAMETHASONE [Concomitant]

REACTIONS (2)
  - DRUG INTERACTION [None]
  - MYOCLONUS [None]
